FAERS Safety Report 5891556-0 (Version None)
Quarter: 2008Q3

REPORT INFORMATION
  Report Type: 
  Country: None (occurrence: None)
  Receive Date: 20080922
  Receipt Date: 20080912
  Transmission Date: 20090109
  Serious: Yes (Other)
  Sender: FDA-Public Use
  Company Number: HQWYE084413AUG03

PATIENT
  Sex: Female
  Weight: 68.1 kg

DRUGS (4)
  1. PREMPRO [Suspect]
     Indication: HORMONE REPLACEMENT THERAPY
     Dosage: UNKNOWN
     Route: 048
     Dates: start: 19970701, end: 19990101
  2. ESTROPIPATE [Suspect]
     Dosage: UNKNOWN
     Dates: start: 19980401, end: 19990901
  3. FLUOXETINE HYDROCHLORIDE [Concomitant]
  4. MEDROXYPROGESTERONE ACETATE [Suspect]
     Dosage: UNKNOWN
     Dates: start: 19980401, end: 19990901

REACTIONS (4)
  - ASTHENIA [None]
  - BONE DENSITY DECREASED [None]
  - BREAST CANCER METASTATIC [None]
  - NAUSEA [None]
